FAERS Safety Report 15238788 (Version 1)
Quarter: 2018Q3

REPORT INFORMATION
  Report Type: Report from Study
  Country: IT (occurrence: IT)
  Receive Date: 20180803
  Receipt Date: 20180803
  Transmission Date: 20181010
  Serious: Yes (Life-Threatening, Hospitalization)
  Sender: FDA-Public Use
  Company Number: IT-TEVA-2018-IT-934165

PATIENT
  Age: 73 Year
  Sex: Male

DRUGS (15)
  1. IRINOTECAN [Suspect]
     Active Substance: IRINOTECAN
     Route: 041
     Dates: start: 20160614, end: 20160614
  2. LEUCOVORIN. [Suspect]
     Active Substance: LEUCOVORIN
     Route: 041
     Dates: start: 20160209, end: 20160209
  3. SIMVASTATIN. [Concomitant]
     Active Substance: SIMVASTATIN
     Indication: PROPHYLAXIS
     Route: 065
     Dates: start: 2015
  4. 5?FU [Suspect]
     Active Substance: FLUOROURACIL
     Indication: COLORECTAL CANCER METASTATIC
     Route: 040
     Dates: start: 20160209, end: 20160209
  5. 5?FU [Suspect]
     Active Substance: FLUOROURACIL
     Route: 041
     Dates: start: 20160614, end: 20160614
  6. 5?FU [Suspect]
     Active Substance: FLUOROURACIL
     Route: 040
     Dates: start: 20160614, end: 20160614
  7. ZOPRAZIDE [Concomitant]
     Active Substance: HYDROCHLOROTHIAZIDE\ZOFENOPRIL CALCIUM
     Route: 065
  8. IRINOTECAN [Suspect]
     Active Substance: IRINOTECAN
     Indication: COLORECTAL CANCER METASTATIC
     Route: 041
     Dates: start: 20160209, end: 20160209
  9. AFLIBERCEPT [Suspect]
     Active Substance: AFLIBERCEPT
     Indication: COLORECTAL CANCER METASTATIC
     Route: 041
     Dates: start: 20160209, end: 20160209
  10. 5?FU [Suspect]
     Active Substance: FLUOROURACIL
     Route: 041
     Dates: start: 20160209, end: 20160209
  11. COAPROVEL [Concomitant]
     Active Substance: HYDROCHLOROTHIAZIDE\IRBESARTAN
     Route: 065
  12. AFLIBERCEPT [Suspect]
     Active Substance: AFLIBERCEPT
     Route: 041
     Dates: start: 20160614, end: 20160614
  13. CARDIOASPIRIN [Concomitant]
     Active Substance: ASPIRIN
     Route: 065
  14. RANITIDINE. [Concomitant]
     Active Substance: RANITIDINE
     Indication: PROPHYLAXIS
     Route: 065
     Dates: start: 20160209
  15. LEUCOVORIN. [Suspect]
     Active Substance: LEUCOVORIN
     Indication: COLORECTAL CANCER METASTATIC
     Route: 041
     Dates: start: 20160614, end: 20160614

REACTIONS (1)
  - Myocardial infarction [Recovered/Resolved]

NARRATIVE: CASE EVENT DATE: 20160615
